FAERS Safety Report 5642844-4 (Version None)
Quarter: 2008Q1

REPORT INFORMATION
  Report Type: 
  Country: None (occurrence: None)
  Receive Date: 20080228
  Receipt Date: 20080219
  Transmission Date: 20080703
  Serious: Yes (Life-Threatening, Hospitalization, Other)
  Sender: FDA-Public Use
  Company Number: PHEH2008US02227

PATIENT
  Sex: Male

DRUGS (2)
  1. PRINIVIL [Concomitant]
  2. TEKTURNA [Suspect]
     Dosage: 150 MG, QD

REACTIONS (4)
  - ARRHYTHMIA [None]
  - HYPERKALAEMIA [None]
  - PALPITATIONS [None]
  - TYPE 1 DIABETES MELLITUS [None]
